FAERS Safety Report 7299149-8 (Version None)
Quarter: 2010Q4

REPORT INFORMATION
  Report Type: 
  Country: None (occurrence: None)
  Receive Date: 20101223
  Receipt Date: 20100803
  Transmission Date: 20110411
  Serious: Yes (Other)
  Sender: FDA-Public Use
  Company Number: 243029USA

PATIENT
  Age: 34 Year
  Sex: Female

DRUGS (1)
  1. PARAGARD T 380A [Suspect]
     Indication: CONTRACEPTION
     Dosage: I.U.
     Dates: start: 20040301, end: 20100707

REACTIONS (6)
  - ABDOMINAL DISTENSION [None]
  - COITAL BLEEDING [None]
  - MEDICAL DEVICE COMPLICATION [None]
  - NAUSEA [None]
  - PAIN [None]
  - UTERINE CERVICAL EROSION [None]
